FAERS Safety Report 9116974 (Version 1)
Quarter: 2013Q1

REPORT INFORMATION
  Report Type: Spontaneous
  Country: US (occurrence: US)
  Receive Date: 20130225
  Receipt Date: 20130225
  Transmission Date: 20140127
  Serious: No
  Sender: FDA-Public Use
  Company Number: US-009507513-1302USA010977

PATIENT
  Age: 27 Year
  Sex: Female

DRUGS (1)
  1. IMPLANON [Suspect]
     Dosage: UNK
     Route: 059
     Dates: start: 201102

REACTIONS (2)
  - Weight increased [Not Recovered/Not Resolved]
  - Medical device complication [Unknown]
